FAERS Safety Report 7802892-2 (Version None)
Quarter: 2011Q4

REPORT INFORMATION
  Report Type: 
  Country: None (occurrence: None)
  Receive Date: 20111007
  Receipt Date: 20110927
  Transmission Date: 20120403
  Serious: Yes (Hospitalization)
  Sender: FDA-Public Use
  Company Number: IL-NOVOPROD-335984

PATIENT

DRUGS (12)
  1. RYTHMEX [Concomitant]
     Indication: ATRIAL FIBRILLATION
     Dosage: 600.0 MG, QD
     Dates: start: 20080101
  2. LIRAGLUTIDE FLEXPEN [Suspect]
     Indication: TYPE 2 DIABETES MELLITUS
     Dosage: 1.8 MG, QD
     Route: 058
     Dates: start: 20110529
  3. METFORMIN HYDROCHLORIDE [Concomitant]
     Indication: DIABETES MELLITUS
     Dosage: 2550.0 MG, QD
     Dates: start: 20000101
  4. LOSEC                              /00661201/ [Concomitant]
     Dosage: 20.0 MG, QD
     Dates: start: 20010101
  5. COUMADIN [Concomitant]
     Indication: ATRIAL FIBRILLATION
     Dosage: 7.0 MG, QD
     Dates: start: 20080101
  6. AMLODIPINE SANDOZ                  /00972404/ [Concomitant]
     Indication: HYPERTENSION
     Dosage: 5.0 MG, QD
     Dates: start: 20050101
  7. REPAGLINIDE [Concomitant]
     Indication: DIABETES MELLITUS
     Dosage: 3.0 MG, QD
     Dates: start: 20050101
  8. DISOTHIAZIDE [Concomitant]
     Indication: HYPERTENSION
     Dosage: 50.0 MG, QD
     Dates: start: 20050101
  9. INSULIN GLARGINE [Concomitant]
     Indication: DIABETES MELLITUS
     Dosage: 28.0 U, QD
     Dates: start: 20070101
  10. FUSID                              /00032601/ [Concomitant]
     Indication: HYPERTENSION
     Dosage: 80 MG, QD
     Dates: start: 20110101
  11. CARDILOC [Concomitant]
     Indication: MYOCARDIAL ISCHAEMIA
     Dosage: 5.0 MG, QD
     Dates: start: 20050101
  12. LOTAN                              /00917501/ [Concomitant]
     Indication: HYPERTENSION
     Dosage: 50.0 MG, QD
     Dates: start: 20000101

REACTIONS (1)
  - ATRIAL FIBRILLATION [None]
